FAERS Safety Report 25419086 (Version 3)
Quarter: 2025Q2

REPORT INFORMATION
  Report Type: Report from Study
  Country: US (occurrence: US)
  Receive Date: 20250610
  Receipt Date: 20250626
  Transmission Date: 20250716
  Serious: Yes (Death, Hospitalization)
  Sender: BAUSCH AND LOMB
  Company Number: US-BAUSCH-BL-2025-007147

PATIENT
  Age: 67 Year
  Sex: Female
  Weight: 129.39 kg

DRUGS (2)
  1. XIFAXAN [Suspect]
     Active Substance: RIFAXIMIN
     Indication: Crohn^s disease
     Dosage: TWICE A DAY
     Route: 048
     Dates: start: 2024, end: 202505
  2. XIFAXAN [Suspect]
     Active Substance: RIFAXIMIN
     Indication: Liver disorder

REACTIONS (4)
  - Hepatic cirrhosis [Fatal]
  - Renal failure [Fatal]
  - Chronic obstructive pulmonary disease [Fatal]
  - Product dose omission issue [Unknown]

NARRATIVE: CASE EVENT DATE: 20250501
